FAERS Safety Report 7814440-1 (Version None)
Quarter: 2011Q4

REPORT INFORMATION
  Report Type: 
  Country: None (occurrence: None)
  Receive Date: 20111014
  Receipt Date: 20111011
  Transmission Date: 20120403
  Serious: Yes (Hospitalization)
  Sender: FDA-Public Use
  Company Number: PHEH2011US06566

PATIENT
  Sex: Female
  Weight: 57.596 kg

DRUGS (1)
  1. EXJADE [Suspect]
     Indication: APLASTIC ANAEMIA
     Dosage: 1250 MG, DAILY
     Route: 048
     Dates: start: 20061229

REACTIONS (2)
  - ESCHERICHIA SEPSIS [None]
  - DIARRHOEA [None]
